FAERS Safety Report 11101352 (Version 3)
Quarter: 2015Q3

REPORT INFORMATION
  Report Type: Spontaneous
  Country: US (occurrence: US)
  Receive Date: 20150508
  Receipt Date: 20150703
  Transmission Date: 20151125
  Serious: No
  Sender: FDA-Public Use
  Company Number: US-009507513-1504USA024290

PATIENT
  Age: 69 Year
  Sex: Female
  Weight: 68.48 kg

DRUGS (11)
  1. LUMIGAN [Concomitant]
     Active Substance: BIMATOPROST
  2. PROZAC [Concomitant]
     Active Substance: FLUOXETINE HYDROCHLORIDE
  3. HYDRALAZINE [Concomitant]
     Active Substance: HYDRALAZINE HYDROCHLORIDE
  4. CLONIDINE. [Concomitant]
     Active Substance: CLONIDINE
  5. LIPITOR [Concomitant]
     Active Substance: ATORVASTATIN CALCIUM
  6. METFORMIN [Concomitant]
     Active Substance: METFORMIN HYDROCHLORIDE
  7. FUROSEMIDE. [Concomitant]
     Active Substance: FUROSEMIDE
  8. BYDUREON [Concomitant]
     Active Substance: EXENATIDE
  9. DULERA [Suspect]
     Active Substance: FORMOTEROL FUMARATE DIHYDRATE\MOMETASONE FUROATE
     Indication: ASTHMA
     Dosage: 2 DF, BID (INHALE TWO PUFFS TWICE DAILY)
     Route: 055
     Dates: start: 20150420
  10. ACTOS [Concomitant]
     Active Substance: PIOGLITAZONE HYDROCHLORIDE
  11. METOPROLOL [Concomitant]
     Active Substance: METOPROLOL

REACTIONS (2)
  - Product quality issue [Unknown]
  - Blood glucose increased [Not Recovered/Not Resolved]

NARRATIVE: CASE EVENT DATE: 201504
